FAERS Safety Report 19279861 (Version 2)
Quarter: 2021Q4

REPORT INFORMATION
  Report Type: Spontaneous
  Country: US (occurrence: US)
  Receive Date: 20210520
  Receipt Date: 20211007
  Transmission Date: 20220303
  Serious: Yes (Other)
  Sender: FDA-Public Use
  Company Number: US-PFIZER INC-2021529461

PATIENT
  Age: 60 Year
  Sex: Female

DRUGS (1)
  1. LYRICA [Suspect]
     Active Substance: PREGABALIN
     Dosage: UNK

REACTIONS (9)
  - Intracranial aneurysm [Unknown]
  - Ruptured cerebral aneurysm [Unknown]
  - Neuropathy peripheral [Unknown]
  - Insomnia [Unknown]
  - Mental disorder [Unknown]
  - Restlessness [Unknown]
  - Anxiety [Unknown]
  - Pain in extremity [Unknown]
  - Feeling abnormal [Unknown]
